FAERS Safety Report 15454468 (Version 4)
Quarter: 2019Q2

REPORT INFORMATION
  Report Type: Spontaneous
  Country: US (occurrence: US)
  Receive Date: 20181002
  Receipt Date: 20190509
  Transmission Date: 20190711
  Serious: No
  Sender: FDA-Public Use
  Company Number: US-PFIZER INC-2018395301

PATIENT
  Age: 71 Year
  Sex: Male
  Weight: 136 kg

DRUGS (6)
  1. VFEND [Suspect]
     Active Substance: VORICONAZOLE
     Dosage: UNK, 2X/DAY [1 AND HALF]
     Route: 048
     Dates: start: 20190306
  2. VFEND [Suspect]
     Active Substance: VORICONAZOLE
     Indication: VASCULAR DEVICE INFECTION
     Dosage: 300 MG, 2X/DAY (1.5 TABLET, 2X/DAY)
     Route: 048
  3. VFEND [Suspect]
     Active Substance: VORICONAZOLE
     Indication: VENTRICULAR ASSIST DEVICE INSERTION
     Dosage: 200 MG, UNK
  4. VFEND [Suspect]
     Active Substance: VORICONAZOLE
     Dosage: UNK
  5. VFEND [Suspect]
     Active Substance: VORICONAZOLE
     Dosage: UNK , 2X/DAY (TAKE 1 + 1/2 TABLET PO BID (TWICE DAILY))
     Route: 048
  6. VFEND [Suspect]
     Active Substance: VORICONAZOLE
     Indication: FUNGAL INFECTION
     Dosage: 450 MG, 2X/DAY (TAKE 1.5 TABLET ( TWICE A DAY)

REACTIONS (3)
  - Product use issue [Unknown]
  - Therapeutic response decreased [Unknown]
  - Prescription drug used without a prescription [Unknown]

NARRATIVE: CASE EVENT DATE: 20180831
